FAERS Safety Report 7105868-6 (Version None)
Quarter: 2010Q4

REPORT INFORMATION
  Report Type: 
  Country: None (occurrence: None)
  Receive Date: 20101116
  Receipt Date: 20101108
  Transmission Date: 20110411
  Serious: Yes (Other)
  Sender: FDA-Public Use
  Company Number: A0862305A

PATIENT
  Sex: Female
  Weight: 68.6 kg

DRUGS (1)
  1. AVANDIA [Suspect]
     Route: 048

REACTIONS (6)
  - CARDIAC ARREST [None]
  - CEREBROVASCULAR ACCIDENT [None]
  - FLUID OVERLOAD [None]
  - FLUID RETENTION [None]
  - HEART INJURY [None]
  - LIVER INJURY [None]
